FAERS Safety Report 11886455 (Version 1)
Quarter: 2016Q1

REPORT INFORMATION
  Report Type: Spontaneous
  Country: US (occurrence: US)
  Receive Date: 20160104
  Receipt Date: 20160104
  Transmission Date: 20160526
  Serious: No
  Sender: FDA-Public Use
  Company Number: US-ENDO PHARMACEUTICALS INC.-2015-003529

PATIENT
  Age: 39 Year
  Sex: Female
  Weight: 39.5 kg

DRUGS (3)
  1. PROMETHAZINE VC WITH CODEINE SYRUP [Suspect]
     Active Substance: CODEINE\PROMETHAZINE
     Indication: COUGH
     Route: 065
     Dates: start: 2013
  2. CELLCEPT [Concomitant]
     Active Substance: MYCOPHENOLATE MOFETIL\MYCOPHENOLATE MOFETIL HYDROCHLORIDE
     Indication: SYSTEMIC LUPUS ERYTHEMATOSUS
  3. QVAR [Concomitant]
     Active Substance: BECLOMETHASONE DIPROPIONATE
     Indication: ASTHMA

REACTIONS (3)
  - Liquid product physical issue [Unknown]
  - Drug ineffective [Unknown]
  - Cough [Unknown]

NARRATIVE: CASE EVENT DATE: 201506
